FAERS Safety Report 23189121 (Version 6)
Quarter: 2024Q1

REPORT INFORMATION
  Report Type: Other
  Country: JP (occurrence: JP)
  Receive Date: 20231115
  Receipt Date: 20240325
  Transmission Date: 20240409
  Serious: Yes (Other)
  Sender: FDA-Public Use
  Company Number: JP-CHUGAI-2023036732

PATIENT
  Age: 57 Year
  Sex: Female
  Weight: 54 kg

DRUGS (6)
  1. TECENTRIQ [Suspect]
     Active Substance: ATEZOLIZUMAB
     Indication: Triple negative breast cancer
     Route: 065
     Dates: start: 20231004
  2. PACLITAXEL [Suspect]
     Active Substance: PACLITAXEL
     Indication: Triple negative breast cancer
     Dosage: 75 MILLIGRAM/SQ. METER, SINGLE
     Route: 065
     Dates: start: 20231004, end: 20231004
  3. PACLITAXEL [Suspect]
     Active Substance: PACLITAXEL
     Dosage: 75 MILLIGRAM/SQ. METER, SINGLE
     Route: 065
     Dates: start: 20231129, end: 20231129
  4. PACLITAXEL [Suspect]
     Active Substance: PACLITAXEL
     Dosage: 75 MILLIGRAM/SQ. METER, SINGLE
     Route: 065
     Dates: start: 20231227, end: 20231227
  5. PACLITAXEL [Suspect]
     Active Substance: PACLITAXEL
     Dosage: 75 MILLIGRAM/SQ. METER, SINGLE
     Route: 065
     Dates: start: 20240124, end: 20240124
  6. PACLITAXEL [Suspect]
     Active Substance: PACLITAXEL
     Dosage: 75 MILLIGRAM/SQ. METER, SINGLE
     Route: 065
     Dates: start: 20240221, end: 20240221

REACTIONS (4)
  - Anaemia [Recovered/Resolved]
  - Neuropathy peripheral [Not Recovered/Not Resolved]
  - Aspartate aminotransferase increased [Recovered/Resolved]
  - Myalgia [Recovered/Resolved]

NARRATIVE: CASE EVENT DATE: 20231011
